FAERS Safety Report 8308229-7 (Version None)
Quarter: 2012Q2

REPORT INFORMATION
  Report Type: 
  Country: None (occurrence: None)
  Receive Date: 20120424
  Receipt Date: 20120416
  Transmission Date: 20120825
  Serious: Yes (Hospitalization)
  Sender: FDA-Public Use
  Company Number: FR-ROCHE-1060335

PATIENT
  Sex: Female

DRUGS (4)
  1. ROCEPHIN [Suspect]
     Indication: CYSTITIS
     Route: 042
     Dates: start: 20120306, end: 20120316
  2. SEMAP [Concomitant]
     Indication: PSYCHOTIC DISORDER
     Route: 048
  3. ACETAMINOPHEN [Suspect]
     Indication: PAIN
     Route: 048
     Dates: end: 20120313
  4. LEPTICUR [Suspect]
     Indication: PSYCHOTIC DISORDER
     Route: 048
     Dates: start: 20120227

REACTIONS (1)
  - LIVER DISORDER [None]
